FAERS Safety Report 20190681 (Version 1)
Quarter: 2021Q4

REPORT INFORMATION
  Report Type: Spontaneous
  Country: US (occurrence: US)
  Receive Date: 20211216
  Receipt Date: 20211216
  Transmission Date: 20220303
  Serious: Yes (Other)
  Sender: FDA-Public Use
  Company Number: US-PURDUE-USA-2020-0155679

PATIENT

DRUGS (1)
  1. HYDROCODONE BITARTRATE [Suspect]
     Active Substance: HYDROCODONE BITARTRATE
     Indication: Knee operation
     Dosage: UNK
     Route: 048
     Dates: start: 2008

REACTIONS (2)
  - Loss of consciousness [Unknown]
  - Drug hypersensitivity [Unknown]
